FAERS Safety Report 4941893-9 (Version None)
Quarter: 2006Q1

REPORT INFORMATION
  Report Type: 
  Country: None (occurrence: None)
  Receive Date: 20060307
  Receipt Date: 20060301
  Transmission Date: 20060701
  Serious: Yes (Hospitalization)
  Sender: FDA-Public Use
  Company Number: S05-USA-02268-01

PATIENT
  Age: 44 Year
  Sex: Female

DRUGS (3)
  1. LEXAPRO [Suspect]
     Indication: DEPRESSION
     Dates: start: 20041201, end: 20050506
  2. LEXAPRO [Suspect]
     Indication: DEPRESSION
     Dates: start: 20050101, end: 20051001
  3. HORMONES (NOS) [Concomitant]

REACTIONS (4)
  - ABNORMAL BEHAVIOUR [None]
  - BIPOLAR I DISORDER [None]
  - STRESS [None]
  - SUICIDAL IDEATION [None]
